FAERS Safety Report 6483316-7 (Version None)
Quarter: 2009Q4

REPORT INFORMATION
  Report Type: 
  Country: None (occurrence: None)
  Receive Date: 20091209
  Receipt Date: 20090424
  Transmission Date: 20100525
  Serious: No
  Sender: FDA-Public Use
  Company Number: US-AMGEN-KDL344306

PATIENT
  Sex: Male

DRUGS (1)
  1. ENBREL [Suspect]
     Indication: RHEUMATOID ARTHRITIS
     Route: 058
     Dates: start: 20080917

REACTIONS (5)
  - CONJUNCTIVITIS [None]
  - CONTUSION [None]
  - ERYTHEMA [None]
  - JOINT SWELLING [None]
  - UPPER RESPIRATORY TRACT INFECTION [None]
